FAERS Safety Report 13042831 (Version 1)
Quarter: 2016Q4

REPORT INFORMATION
  Report Type: Spontaneous
  Country: GB (occurrence: GB)
  Receive Date: 20161219
  Receipt Date: 20161219
  Transmission Date: 20170207
  Serious: Yes (Disabling)
  Sender: FDA-Public Use
  Company Number: GB-CANTON LABORATORIES, LLC-1061005

PATIENT
  Age: 55 Year
  Sex: Female
  Weight: 67 kg

DRUGS (8)
  1. LANSOPRAZOLE. [Suspect]
     Active Substance: LANSOPRAZOLE
     Route: 065
  2. NAPROSYN [Suspect]
     Active Substance: NAPROXEN
     Indication: PRODUCT USED FOR UNKNOWN INDICATION
     Route: 065
     Dates: start: 20160505, end: 20161124
  3. GABAPENTIN. [Concomitant]
     Active Substance: GABAPENTIN
     Route: 065
     Dates: start: 20160505
  4. PREMIQUE (MEDROXYPROGESTERONE ACETATE, CONJUGATED ESTROGENS) [Concomitant]
     Route: 065
     Dates: start: 20161124
  5. ZOMORPH (MORPHINE SULFATE) [Concomitant]
     Active Substance: MORPHINE SULFATE
     Route: 065
     Dates: start: 20160413
  6. MORPHGESIC (MORPHINE SULPHATE) [Concomitant]
     Route: 065
     Dates: start: 20160413
  7. CO-CODAMOL (CODEINE PHOSPHATE, PARACETAMOL) [Concomitant]
     Route: 065
     Dates: start: 20160809
  8. TRAMADOL. [Concomitant]
     Active Substance: TRAMADOL
     Route: 065
     Dates: start: 20160413

REACTIONS (1)
  - Colitis microscopic [Recovering/Resolving]

NARRATIVE: CASE EVENT DATE: 20161124
